FAERS Safety Report 17272847 (Version 2)
Quarter: 2020Q1

REPORT INFORMATION
  Report Type: Spontaneous
  Country: JP (occurrence: JP)
  Receive Date: 20200115
  Receipt Date: 20200124
  Transmission Date: 20200409
  Serious: Yes (Other)
  Sender: FDA-Public Use
  Company Number: JP-MYLANLABS-2020M1005594

PATIENT
  Age: 56 Year
  Sex: Female

DRUGS (1)
  1. ASACOL [Suspect]
     Active Substance: MESALAMINE
     Indication: COLITIS ULCERATIVE
     Dosage: 3600 MILLIGRAM
     Route: 048

REACTIONS (2)
  - Optic neuropathy [Recovering/Resolving]
  - Optic atrophy [Recovering/Resolving]
